FAERS Safety Report 21321005 (Version 2)
Quarter: 2022Q3

REPORT INFORMATION
  Report Type: Other
  Country: DE (occurrence: None)
  Receive Date: 20220912
  Receipt Date: 20220927
  Transmission Date: 20221027
  Serious: Yes (Death, Disabling)
  Sender: FDA-Public Use
  Company Number: DE-ROCHE-3175445

PATIENT
  Age: 59 Year
  Sex: Male

DRUGS (5)
  1. OCRELIZUMAB [Suspect]
     Active Substance: OCRELIZUMAB
     Indication: Primary progressive multiple sclerosis
     Route: 042
     Dates: start: 20200430, end: 20200514
  2. OCRELIZUMAB [Suspect]
     Active Substance: OCRELIZUMAB
     Route: 042
     Dates: start: 20201211
  3. TAMSULOSIN [Concomitant]
     Active Substance: TAMSULOSIN
     Indication: Benign prostatic hyperplasia
     Route: 048
     Dates: start: 20201005
  4. DALFAMPRIDINE [Concomitant]
     Active Substance: DALFAMPRIDINE
     Route: 048
     Dates: start: 20200914, end: 20201012
  5. TRIAMCINOLONE ACETONIDE [Concomitant]
     Active Substance: TRIAMCINOLONE ACETONIDE
     Indication: Ataxia
     Route: 037
     Dates: start: 20201014, end: 20201014

REACTIONS (2)
  - Death [Fatal]
  - Sudden death [Fatal]

NARRATIVE: CASE EVENT DATE: 20220305
